FAERS Safety Report 23504205 (Version 1)
Quarter: 2024Q1

REPORT INFORMATION
  Report Type: Spontaneous
  Country: US (occurrence: US)
  Receive Date: 20240209
  Receipt Date: 20240209
  Transmission Date: 20240410
  Serious: No
  Sender: FDA-Public Use
  Company Number: US-ABBVIE-5629479

PATIENT
  Sex: Female

DRUGS (2)
  1. SAPHRIS [Suspect]
     Active Substance: ASENAPINE MALEATE
     Indication: Bipolar disorder
     Dosage: FORM STRENGTH WAS 20 MILLIGRAM?AND TOOK IT ONE DOSE AT HS
     Route: 048
  2. SAPHRIS [Suspect]
     Active Substance: ASENAPINE MALEATE
     Indication: Bipolar disorder
     Dosage: FORM STRENGTH WAS 10 MILLIGRAM
     Route: 048

REACTIONS (1)
  - Depressive symptom [Unknown]
